FAERS Safety Report 8102067-6 (Version None)
Quarter: 2012Q1

REPORT INFORMATION
  Report Type: 
  Country: None (occurrence: None)
  Receive Date: 20120131
  Receipt Date: 20120123
  Transmission Date: 20120608
  Serious: Yes (Hospitalization, Other)
  Sender: FDA-Public Use
  Company Number: US-MERCK-1109USA00852

PATIENT
  Age: 75 Year
  Sex: Female

DRUGS (9)
  1. FOSAMAX [Suspect]
     Route: 048
     Dates: start: 20080211, end: 20090504
  2. TRIAMTERENE [Concomitant]
     Route: 065
     Dates: start: 20030101
  3. FLONASE [Concomitant]
     Route: 065
     Dates: start: 20030101
  4. POTASSIUM (UNSPECIFIED) [Concomitant]
     Route: 065
     Dates: start: 20030101
  5. FOSAMAX [Suspect]
     Indication: OSTEOPOROSIS
     Route: 048
     Dates: start: 20050203, end: 20100224
  6. VITAMIN D (UNSPECIFIED) [Concomitant]
     Route: 065
  7. METOPROLOL [Concomitant]
     Route: 065
     Dates: start: 20030101
  8. FOSAMAX PLUS D [Suspect]
     Indication: OSTEOPOROSIS
     Route: 048
     Dates: start: 20080211, end: 20090202
  9. CALCIUM (UNSPECIFIED) [Concomitant]
     Route: 065

REACTIONS (23)
  - HIP FRACTURE [None]
  - ATRIAL FIBRILLATION [None]
  - BLOOD PRESSURE INADEQUATELY CONTROLLED [None]
  - LUMBAR RADICULOPATHY [None]
  - OVERDOSE [None]
  - ILIOTIBIAL BAND SYNDROME [None]
  - MUSCLE STRAIN [None]
  - SCIATICA [None]
  - CARPAL TUNNEL SYNDROME [None]
  - BLOOD TRIGLYCERIDES INCREASED [None]
  - PAIN IN EXTREMITY [None]
  - BLOOD CHOLESTEROL INCREASED [None]
  - COUGH [None]
  - INFECTION [None]
  - TOOTH DISORDER [None]
  - GLUCOSE TOLERANCE IMPAIRED [None]
  - PAIN IN JAW [None]
  - GASTROOESOPHAGEAL REFLUX DISEASE [None]
  - FEMUR FRACTURE [None]
  - IMPAIRED HEALING [None]
  - OSTEONECROSIS OF JAW [None]
  - TRISMUS [None]
  - DIZZINESS [None]
